FAERS Safety Report 5643851-8 (Version None)
Quarter: 2008Q1

REPORT INFORMATION
  Report Type: 
  Country: None (occurrence: None)
  Receive Date: 20080131
  Receipt Date: 20071010
  Transmission Date: 20080703
  Serious: Yes (Hospitalization)
  Sender: FDA-Public Use
  Company Number: 163-21880-07100618

PATIENT
  Age: 59 Year
  Sex: Female

DRUGS (10)
  1. REVLIMID [Suspect]
     Indication: MULTIPLE MYELOMA
     Dosage: 25 MG, 1 IN 1 D, ORAL
     Route: 048
     Dates: start: 20070701, end: 20070801
  2. POTASSIUM (POTASSIUM) [Concomitant]
  3. MIRALAX [Concomitant]
  4. NEXIUM [Concomitant]
  5. SEROQUEL [Concomitant]
  6. ALPRAZOLAM [Concomitant]
  7. ANTIVERT (MECLOZINE HYDROCHLORIDE) [Concomitant]
  8. COUMADIN [Concomitant]
  9. MULTI-VITAMINS [Concomitant]
  10. LEXAPRIL (ESCITALOPRAM OXALATE) [Concomitant]

REACTIONS (1)
  - RASH GENERALISED [None]
